FAERS Safety Report 5856381-5 (Version None)
Quarter: 2008Q3

REPORT INFORMATION
  Report Type: 
  Country: None (occurrence: None)
  Receive Date: 20080821
  Receipt Date: 20080812
  Transmission Date: 20090109
  Serious: Yes (Congenital Anomaly, Other)
  Sender: FDA-Public Use
  Company Number: 1000000428

PATIENT

DRUGS (6)
  1. CARBAMAZEPINE [Suspect]
     Indication: CONVULSION
  2. MYCOPHENOLATE MOFETIL [Suspect]
     Indication: IMMUNOSUPPRESSION
     Dosage: 1000 MG (500 MG, 2 IN 1 D), 500 MG (250 MG, 2 IN 1 D)
  3. DILTIAZEM HCL [Concomitant]
  4. TACROLIMUS [Concomitant]
  5. PREDNISONE [Concomitant]
  6. PRAVASTATIN [Concomitant]

REACTIONS (8)
  - ANOMALY OF MIDDLE EAR CONGENITAL [None]
  - CLEFT PALATE [None]
  - CONGENITAL ANOMALY OF INNER EAR [None]
  - EAR MALFORMATION [None]
  - MATERNAL DRUGS AFFECTING FOETUS [None]
  - MICROPHTHALMOS [None]
  - PULMONARY VALVE STENOSIS [None]
  - UMBILICAL HERNIA [None]
